FAERS Safety Report 9278419 (Version 1)
Quarter: 2013Q2

REPORT INFORMATION
  Report Type: Report from Study
  Country: TW (occurrence: SG)
  Receive Date: 20130508
  Receipt Date: 20130508
  Transmission Date: 20140414
  Serious: Yes (Hospitalization)
  Sender: FDA-Public Use
  Company Number: SG-PFIZER INC-2013137040

PATIENT
  Age: 70 Year
  Sex: Male

DRUGS (2)
  1. OXALIPLATIN [Suspect]
     Indication: CHEMOTHERAPY
     Dosage: CUMULATIVE DOSE 960 MG
  2. CAPECITABINE [Concomitant]
     Indication: CHEMOTHERAPY
     Dosage: UNK

REACTIONS (4)
  - Dysphonia [Unknown]
  - Flushing [Unknown]
  - Wheezing [Unknown]
  - Dysphagia [Unknown]
